FAERS Safety Report 24982584 (Version 1)
Quarter: 2025Q1

REPORT INFORMATION
  Report Type: Report from Study
  Country: PH (occurrence: PH)
  Receive Date: 20250218
  Receipt Date: 20250218
  Transmission Date: 20250409
  Serious: Yes (Death)
  Sender: OTSUKA
  Company Number: PH-OTSUKA-2024_026463

PATIENT
  Sex: Male

DRUGS (1)
  1. TOLVAPTAN [Suspect]
     Active Substance: TOLVAPTAN
     Indication: Peripheral swelling
     Route: 048
     Dates: start: 2024

REACTIONS (3)
  - Renal failure [Fatal]
  - Cardiac failure [Fatal]
  - Inappropriate schedule of product administration [Unknown]
